FAERS Safety Report 4302136-2 (Version None)
Quarter: 2004Q1

REPORT INFORMATION
  Report Type: 
  Country: None (occurrence: None)
  Receive Date: 20040126
  Receipt Date: 20031020
  Transmission Date: 20041129
  Serious: No
  Sender: FDA-Public Use
  Company Number: US_031098426

PATIENT
  Sex: Female
  Weight: 39 kg

DRUGS (2)
  1. STRATTERA [Suspect]
     Dosage: 60 MG/DAY
     Dates: start: 20030311, end: 20030411
  2. PAXIL [Concomitant]

REACTIONS (3)
  - ABNORMAL BEHAVIOUR [None]
  - DISTURBANCE IN ATTENTION [None]
  - PRESCRIBED OVERDOSE [None]
